FAERS Safety Report 22200451 (Version 1)
Quarter: 2023Q2

REPORT INFORMATION
  Report Type: Spontaneous
  Country: DE (occurrence: DE)
  Receive Date: 20230412
  Receipt Date: 20230412
  Transmission Date: 20230722
  Serious: Yes (Other)
  Sender: FDA-Public Use
  Company Number: None

PATIENT
  Age: 49 Year
  Sex: Male
  Weight: 68 kg

DRUGS (1)
  1. FLUOXETINE [Suspect]
     Active Substance: FLUOXETINE HYDROCHLORIDE
     Indication: Product used for unknown indication
     Dosage: UNK
     Route: 065

REACTIONS (4)
  - Arrhythmia [Recovered/Resolved with Sequelae]
  - Muscle spasms [Recovered/Resolved with Sequelae]
  - Hypoaesthesia [Recovered/Resolved with Sequelae]
  - Muscle twitching [Recovered/Resolved with Sequelae]

NARRATIVE: CASE EVENT DATE: 20220101
